FAERS Safety Report 8957620 (Version 2)
Quarter: 2014Q2

REPORT INFORMATION
  Report Type: Spontaneous
  Country: US (occurrence: US)
  Receive Date: 20121211
  Receipt Date: 20140618
  Transmission Date: 20141212
  Serious: No
  Sender: FDA-Public Use
  Company Number: US-BIOGENIDEC-2012BI056628

PATIENT
  Sex: Female

DRUGS (2)
  1. AVONEX [Suspect]
     Indication: MULTIPLE SCLEROSIS
     Route: 030
     Dates: start: 20120924, end: 20130901
  2. AVONEX [Suspect]
     Indication: MULTIPLE SCLEROSIS
     Route: 030
     Dates: start: 20131125

REACTIONS (5)
  - Nervous system disorder [Not Recovered/Not Resolved]
  - Memory impairment [Recovered/Resolved]
  - Aphasia [Unknown]
  - Gait disturbance [Recovered/Resolved]
  - General symptom [Unknown]
